FAERS Safety Report 23299921 (Version 1)
Quarter: 2023Q4

REPORT INFORMATION
  Report Type: Spontaneous
  Country: US (occurrence: None)
  Receive Date: 20231215
  Receipt Date: 20231215
  Transmission Date: 20240110
  Serious: No
  Sender: FDA-Public Use
  Company Number: 2023A283641

PATIENT
  Sex: Female

DRUGS (1)
  1. OLAPARIB [Suspect]
     Active Substance: OLAPARIB
     Indication: Ovarian neoplasm
     Dosage: UNK
     Route: 048

REACTIONS (2)
  - Taste disorder [Unknown]
  - Tongue discolouration [Unknown]

NARRATIVE: CASE EVENT DATE: 20231107
